FAERS Safety Report 8081427-6 (Version None)
Quarter: 2012Q1

REPORT INFORMATION
  Report Type: 
  Country: None (occurrence: None)
  Receive Date: 20120130
  Receipt Date: 20120125
  Transmission Date: 20120608
  Serious: Yes (Death, Hospitalization)
  Sender: FDA-Public Use
  Company Number: US-BRISTOL-MYERS SQUIBB COMPANY-16326704

PATIENT
  Age: 78 Year
  Sex: Male
  Weight: 63 kg

DRUGS (7)
  1. TAXOL [Suspect]
     Indication: NON-SMALL CELL LUNG CANCER
     Dosage: LAST DOSE:20DEC11
     Dates: start: 20111010
  2. HYTRIN [Concomitant]
  3. ASPIRIN [Concomitant]
  4. ERBITUX [Suspect]
     Indication: NON-SMALL CELL LUNG CANCER
     Dosage: LAST DOSE:27DEC11
     Dates: start: 20111010
  5. AMLODIPINE BESYLATE [Concomitant]
  6. CARBOPLATIN [Suspect]
     Indication: NON-SMALL CELL LUNG CANCER
     Dosage: LAST DOSE:14NOV11
     Dates: start: 20111010
  7. ONDANSETRON HCL [Concomitant]

REACTIONS (2)
  - DEHYDRATION [None]
  - FEBRILE NEUTROPENIA [None]
